FAERS Safety Report 4682677-9 (Version None)
Quarter: 2005Q2

REPORT INFORMATION
  Report Type: 
  Country: None (occurrence: None)
  Receive Date: 20050606
  Receipt Date: 20050527
  Transmission Date: 20051028
  Serious: Yes (Hospitalization)
  Sender: FDA-Public Use
  Company Number: FR-GLAXOSMITHKLINE-B0382994A

PATIENT
  Age: 83 Year
  Sex: Female
  Weight: 93 kg

DRUGS (9)
  1. AUGMENTIN [Suspect]
     Route: 048
     Dates: start: 20050319, end: 20050325
  2. PREVISCAN [Suspect]
     Indication: ATRIAL FIBRILLATION
     Route: 048
     Dates: end: 20050324
  3. LASILIX [Suspect]
     Indication: ATRIAL FIBRILLATION
     Route: 048
     Dates: start: 20050317, end: 20050321
  4. TILDIEM [Suspect]
     Indication: ATRIAL FIBRILLATION
     Dosage: 60MG THREE TIMES PER DAY
     Route: 048
     Dates: start: 20050317
  5. CORDARONE [Suspect]
     Indication: ATRIAL FIBRILLATION
     Dosage: 200MG PER DAY
     Route: 048
     Dates: start: 20050317
  6. DIGOXINE NATIVELLE [Suspect]
     Indication: ATRIAL FIBRILLATION
     Dosage: .125MG PER DAY
     Route: 048
     Dates: start: 20050318
  7. MUCOMYST [Concomitant]
     Dosage: 3SAC PER DAY
     Route: 048
  8. BRICANYL [Concomitant]
     Route: 055
  9. ATROVENT [Concomitant]
     Route: 055

REACTIONS (4)
  - DEHYDRATION [None]
  - DRUG INTERACTION [None]
  - INTERNATIONAL NORMALISED RATIO INCREASED [None]
  - RENAL FAILURE [None]
